FAERS Safety Report 6678723-3 (Version None)
Quarter: 2010Q2

REPORT INFORMATION
  Report Type: 
  Country: None (occurrence: None)
  Receive Date: 20100413
  Receipt Date: 20100408
  Transmission Date: 20101027
  Serious: Yes (Death, Life-Threatening, Hospitalization)
  Sender: FDA-Public Use
  Company Number: PHHY2010FR22094

PATIENT
  Sex: Male

DRUGS (3)
  1. RASILEZ [Suspect]
     Dosage: 300 MG, ONCE/SINGLE
     Route: 048
     Dates: start: 20091218
  2. LODOZ [Concomitant]
     Indication: HYPERTENSION
     Dosage: 2.5 MG, QD
     Route: 048
     Dates: start: 20051125, end: 20091208
  3. ALLOPURINOL [Concomitant]
     Indication: GOUT
     Dosage: 200 MG/DAY
     Route: 048
     Dates: start: 20051125

REACTIONS (9)
  - ABDOMINAL PAIN [None]
  - ACCIDENTAL EXPOSURE [None]
  - DISSEMINATED INTRAVASCULAR COAGULATION [None]
  - HEPATITIS ACUTE [None]
  - HYPOTENSION [None]
  - MULTI-ORGAN FAILURE [None]
  - RENAL FAILURE ACUTE [None]
  - SEPTIC SHOCK [None]
  - SHOCK [None]
